FAERS Safety Report 24297556 (Version 1)
Quarter: 2024Q3

REPORT INFORMATION
  Report Type: Spontaneous
  Country: US (occurrence: None)
  Receive Date: 20240906
  Receipt Date: 20240906
  Transmission Date: 20241017
  Serious: Yes (Hospitalization)
  Sender: Public
  Company Number: None

PATIENT
  Sex: Female

DRUGS (3)
  1. AIMOVIG [Suspect]
     Active Substance: ERENUMAB-AOOE
     Indication: Headache
     Dosage: OTHER FREQUENCY : Q28DAYS;?
     Route: 058
     Dates: start: 202305
  2. AIMOVIG [Concomitant]
     Active Substance: ERENUMAB-AOOE
  3. NORTHERA [Concomitant]

REACTIONS (2)
  - Cardiac disorder [None]
  - Thrombosis [None]
